FAERS Safety Report 24247384 (Version 2)
Quarter: 2024Q3

REPORT INFORMATION
  Report Type: Report from Study
  Country: CA (occurrence: CA)
  Receive Date: 20240826
  Receipt Date: 20240926
  Transmission Date: 20241016
  Serious: Yes (Other)
  Sender: CELLTRION
  Company Number: CA-PFIZER INC-202400238362

PATIENT

DRUGS (6)
  1. INFLIXIMAB [Suspect]
     Active Substance: INFLIXIMAB
     Route: 065
  2. INFLIXIMAB [Suspect]
     Active Substance: INFLIXIMAB
     Dosage: 400 MG
     Route: 065
  3. REMICADE [Suspect]
     Active Substance: INFLIXIMAB
     Indication: Colitis ulcerative
     Route: 041
  4. REMICADE [Suspect]
     Active Substance: INFLIXIMAB
     Dosage: 500 MG 1 EVERY 8 WEEKS
     Route: 041
  5. REMICADE [Suspect]
     Active Substance: INFLIXIMAB
     Dosage: 500 MG 1 EVERY 8 WEEKS
     Route: 041
  6. PREDNISONE [Concomitant]
     Active Substance: PREDNISONE

REACTIONS (6)
  - Prostate cancer stage III [Not Recovered/Not Resolved]
  - Rash [Not Recovered/Not Resolved]
  - Skin exfoliation [Not Recovered/Not Resolved]
  - Treatment failure [Not Recovered/Not Resolved]
  - Haematochezia [Not Recovered/Not Resolved]
  - Off label use [Not Recovered/Not Resolved]
